FAERS Safety Report 21012864 (Version 2)
Quarter: 2022Q2

REPORT INFORMATION
  Report Type: Spontaneous
  Country: US (occurrence: US)
  Receive Date: 20220627
  Receipt Date: 20220628
  Transmission Date: 20220721
  Serious: No
  Sender: FDA-Public Use
  Company Number: US-SA-2022SA237236

PATIENT
  Age: 53 Year
  Sex: Female

DRUGS (1)
  1. AVALGLUCOSIDASE ALFA [Suspect]
     Active Substance: AVALGLUCOSIDASE ALFA
     Dosage: UNK

REACTIONS (1)
  - Antibody test negative [Not Recovered/Not Resolved]
